FAERS Safety Report 9291337 (Version 2)
Quarter: 2013Q4

REPORT INFORMATION
  Report Type: Spontaneous
  Country: GB (occurrence: None)
  Receive Date: 20130513
  Receipt Date: 20131018
  Transmission Date: 20140711
  Serious: Yes (Other)
  Sender: FDA-Public Use
  Company Number: AUR-APL-2013-03760

PATIENT
  Age: 68 Year
  Sex: Female

DRUGS (19)
  1. MIRTAZAPINE (MIRTAZAPINE) [Suspect]
     Indication: PRODUCT USED FOR UNKNOWN INDICATION
     Dates: start: 20130326, end: 20130417
  2. ACRIVASTINE (ACRIVASTINE) [Concomitant]
  3. ASPIRIN (ACETYLSALICYLIC ACID) [Concomitant]
  4. CALCICHEW [Concomitant]
  5. EZETIMIBE (EZETIMIBE) (TABLET) [Concomitant]
  6. FERROUS FUMARATE (FERROUS FUMARATE) [Concomitant]
  7. FLUTICASONE (FLUTICASONE) [Concomitant]
  8. FORCEVAL [Concomitant]
  9. GLYCEROL (GLYCEROL) [Concomitant]
  10. CLYCERYL TRINITRATE (GLYCERYL TRINITRATE) [Concomitant]
  11. LISINOPRIL (LISINOPRIL) [Concomitant]
  12. OTOMIZE (OTOMIZE) [Concomitant]
  13. PARACETAMOL (PARACETAMOL) [Concomitant]
  14. RANITIDINE (RANITIDINE) [Concomitant]
  15. SENNA (SENNA ALEXANDRINA) [Concomitant]
  16. SODIUM CROMOGLICATE (CROMOGLICATE SODIUM) [Concomitant]
  17. VENTOLIN (SALBUTAMOL) [Concomitant]
  18. VISCOTEARS (CARBOMER) [Concomitant]
  19. E45 ITCH RELIEF (E45 ITCH RELIEF) [Concomitant]

REACTIONS (1)
  - Acquired epidermolysis bullosa [None]
